FAERS Safety Report 13039999 (Version 1)
Quarter: 2016Q4

REPORT INFORMATION
  Report Type: Spontaneous
  Country: US (occurrence: US)
  Receive Date: 20161219
  Receipt Date: 20161219
  Transmission Date: 20170207
  Serious: No
  Sender: FDA-Public Use
  Company Number: US-ENDO PHARMACEUTICALS INC.-2016-003764

PATIENT
  Sex: Male

DRUGS (1)
  1. ENDOCET [Suspect]
     Active Substance: ACETAMINOPHEN\OXYCODONE HYDROCHLORIDE
     Indication: PAIN
     Route: 065
     Dates: start: 20160602

REACTIONS (2)
  - Drug effect decreased [Unknown]
  - Adverse event [Unknown]

NARRATIVE: CASE EVENT DATE: 20160602
